FAERS Safety Report 7488997-7 (Version None)
Quarter: 2011Q2

REPORT INFORMATION
  Report Type: 
  Country: None (occurrence: None)
  Receive Date: 20110518
  Receipt Date: 20110511
  Transmission Date: 20111010
  Serious: Yes (Hospitalization)
  Sender: FDA-Public Use
  Company Number: CA-ROXANE LABORATORIES, INC.-2011-RO-00645RO

PATIENT
  Age: 16 Year
  Sex: Female

DRUGS (6)
  1. AZATHIOPRINE [Suspect]
     Indication: CROHN'S DISEASE
     Dosage: 100 MG
  2. URSODIOL [Suspect]
     Indication: HEPATO-LENTICULAR DEGENERATION
  3. NADOLOL [Suspect]
     Indication: PORTAL HYPERTENSION
     Dosage: 20 MG
  4. MESALAMINE [Suspect]
     Indication: CROHN'S DISEASE
     Dosage: 2.4 G
  5. INFLIXIMAB [Suspect]
     Indication: CROHN'S DISEASE
  6. TRIENTENE [Suspect]
     Indication: HEPATO-LENTICULAR DEGENERATION
     Dosage: 1000 MG

REACTIONS (1)
  - EPSTEIN-BARR VIRUS ASSOCIATED LYMPHOPROLIFERATIVE DISORDER [None]
